FAERS Safety Report 14186933 (Version 2)
Quarter: 2017Q4

REPORT INFORMATION
  Report Type: Spontaneous
  Country: US (occurrence: US)
  Receive Date: 20171114
  Receipt Date: 20171201
  Transmission Date: 20180321
  Serious: No
  Sender: FDA-Public Use
  Company Number: US-PFIZER INC-2017486391

PATIENT
  Age: 11 Year
  Sex: Male
  Weight: 29.48 kg

DRUGS (1)
  1. QUILLIVANT XR [Suspect]
     Active Substance: METHYLPHENIDATE HYDROCHLORIDE
     Indication: ATTENTION DEFICIT/HYPERACTIVITY DISORDER
     Dosage: 4 ML, 1X/DAY
     Route: 048
     Dates: start: 20171004

REACTIONS (5)
  - Intentional product misuse [Unknown]
  - Drug dose omission [Unknown]
  - Abnormal behaviour [Unknown]
  - Disturbance in attention [Unknown]
  - Feeling jittery [Unknown]

NARRATIVE: CASE EVENT DATE: 20171030
